FAERS Safety Report 14257790 (Version 2)
Quarter: 2018Q3

REPORT INFORMATION
  Report Type: Spontaneous
  Country: US (occurrence: US)
  Receive Date: 20171207
  Receipt Date: 20180703
  Transmission Date: 20181010
  Serious: Yes (Hospitalization, Other)
  Sender: FDA-Public Use
  Company Number: US-CIPLA LTD.-2017US21677

PATIENT

DRUGS (12)
  1. CARBOPLATIN. [Suspect]
     Active Substance: CARBOPLATIN
     Indication: METASTASES TO BONE
  2. SORAFENIB [Suspect]
     Active Substance: SORAFENIB
     Indication: LUNG ADENOCARCINOMA RECURRENT
  3. PEMETREXED. [Suspect]
     Active Substance: PEMETREXED
     Indication: METASTASES TO PELVIS
  4. CARBOPLATIN. [Suspect]
     Active Substance: CARBOPLATIN
     Indication: METASTASES TO PELVIS
  5. PEMETREXED. [Suspect]
     Active Substance: PEMETREXED
     Indication: LUNG ADENOCARCINOMA STAGE III
     Dosage: UNK
     Route: 065
     Dates: start: 201002, end: 201207
  6. PEMETREXED. [Suspect]
     Active Substance: PEMETREXED
     Indication: MALIGNANT NEOPLASM PROGRESSION
  7. PEMETREXED. [Suspect]
     Active Substance: PEMETREXED
     Indication: METASTASES TO BONE
  8. SORAFENIB [Suspect]
     Active Substance: SORAFENIB
     Indication: LUNG ADENOCARCINOMA STAGE III
     Dosage: UNK
     Route: 065
     Dates: start: 201002, end: 201211
  9. CARBOPLATIN. [Suspect]
     Active Substance: CARBOPLATIN
     Indication: LUNG ADENOCARCINOMA STAGE III
     Dosage: UNK
     Route: 065
     Dates: start: 200809, end: 200902
  10. PEMETREXED. [Suspect]
     Active Substance: PEMETREXED
     Indication: LUNG ADENOCARCINOMA RECURRENT
     Dosage: UNK
     Route: 065
     Dates: start: 201411, end: 201501
  11. CARBOPLATIN. [Suspect]
     Active Substance: CARBOPLATIN
     Indication: MALIGNANT NEOPLASM PROGRESSION
     Dosage: UNK
     Route: 065
     Dates: start: 201411, end: 201501
  12. PACLITAXEL. [Suspect]
     Active Substance: PACLITAXEL
     Indication: LUNG ADENOCARCINOMA STAGE III
     Dosage: UNK
     Route: 065
     Dates: start: 200809, end: 200902

REACTIONS (6)
  - Lung adenocarcinoma recurrent [Unknown]
  - Malignant neoplasm progression [Unknown]
  - Malignant pleural effusion [Unknown]
  - Metastases to bone [Unknown]
  - Metastases to pelvis [Unknown]
  - Toxicity to various agents [Unknown]

NARRATIVE: CASE EVENT DATE: 201002
